FAERS Safety Report 4293518-6 (Version None)
Quarter: 2004Q1

REPORT INFORMATION
  Report Type: 
  Country: None (occurrence: None)
  Receive Date: 20040210
  Receipt Date: 20040129
  Transmission Date: 20041129
  Serious: No
  Sender: FDA-Public Use
  Company Number: 04P-114-0249268-00

PATIENT
  Age: 14 Year
  Sex: Female

DRUGS (1)
  1. DEPAKINE CHRONO          (SODIUM VALPROATE/VALPROIC ACID) [Suspect]
     Indication: EPILEPSY
     Dosage: 500 MG, 2 IN 1 D, PER ORAL
     Route: 048

REACTIONS (1)
  - EPILEPSY [None]
